FAERS Safety Report 9895057 (Version 1)
Quarter: 2014Q1

REPORT INFORMATION
  Report Type: Spontaneous
  Country: US (occurrence: US)
  Receive Date: 20140213
  Receipt Date: 20140213
  Transmission Date: 20141002
  Serious: No
  Sender: FDA-Public Use
  Company Number: US-BRISTOL-MYERS SQUIBB COMPANY-17353111

PATIENT
  Sex: Female

DRUGS (1)
  1. ORENCIA [Suspect]
     Indication: RHEUMATOID ARTHRITIS
     Dosage: INITIAL DOSE:750MG?START:8 YRS
     Route: 042

REACTIONS (4)
  - Drug ineffective [Unknown]
  - Sinusitis [Unknown]
  - Fall [Unknown]
  - Tooth fracture [Unknown]
